FAERS Safety Report 17935081 (Version 1)
Quarter: 2020Q2

REPORT INFORMATION
  Report Type: Spontaneous
  Country: US (occurrence: US)
  Receive Date: 20200624
  Receipt Date: 20200624
  Transmission Date: 20200714
  Serious: Yes (Hospitalization)
  Sender: FDA-Public Use
  Company Number: None

PATIENT
  Age: 21 Year
  Sex: Male
  Weight: 119 kg

DRUGS (5)
  1. HYDROCODONE-CHLORPHENIRAMINE [Concomitant]
     Dates: start: 20200618, end: 20200623
  2. GUAIFENESIN. [Concomitant]
     Active Substance: GUAIFENESIN
     Dates: start: 20200618, end: 20200623
  3. HEPARIN [Concomitant]
     Active Substance: HEPARIN SODIUM
     Dates: start: 20200618, end: 20200623
  4. DEXAMETHASONE. [Concomitant]
     Active Substance: DEXAMETHASONE
     Dates: start: 20200619, end: 20200623
  5. REMDESIVIR. [Suspect]
     Active Substance: REMDESIVIR
     Route: 042
     Dates: start: 20200619, end: 20200622

REACTIONS (1)
  - Alanine aminotransferase increased [None]

NARRATIVE: CASE EVENT DATE: 20200623
